FAERS Safety Report 15790193 (Version 3)
Quarter: 2019Q1

REPORT INFORMATION
  Report Type: Report from Study
  Country: US (occurrence: US)
  Receive Date: 20190104
  Receipt Date: 20190122
  Transmission Date: 20190417
  Serious: Yes (Other)
  Sender: FDA-Public Use
  Company Number: US-SA-2019SA000831

PATIENT
  Sex: Female

DRUGS (1)
  1. INSULIN GLARGINE [Suspect]
     Active Substance: INSULIN GLARGINE
     Indication: DIABETES MELLITUS
     Dosage: 55 U, BID
     Route: 058
     Dates: start: 201812

REACTIONS (9)
  - Intentional product misuse [Unknown]
  - Coma [Unknown]
  - Eating disorder [Unknown]
  - Blood glucose increased [Unknown]
  - Inappropriate schedule of product administration [Unknown]
  - Product dose omission [Unknown]
  - Loss of consciousness [Unknown]
  - Expired product administered [Unknown]
  - Blood glucose abnormal [Unknown]
